FAERS Safety Report 8267830-X (Version None)
Quarter: 2012Q2

REPORT INFORMATION
  Report Type: 
  Country: None (occurrence: None)
  Receive Date: 20120409
  Receipt Date: 20120327
  Transmission Date: 20120825
  Serious: Yes (Other)
  Sender: FDA-Public Use
  Company Number: JP-AMGEN-JPNCT2012021567

PATIENT
  Age: 74 Year
  Sex: Female
  Weight: 38 kg

DRUGS (10)
  1. PREDNISOLONE [Concomitant]
     Indication: IDIOPATHIC THROMBOCYTOPENIC PURPURA
     Dosage: UNK
     Route: 048
     Dates: start: 20110820, end: 20120131
  2. CLARITIN [Concomitant]
     Indication: PRURITUS
     Dosage: UNCERTAINTY
     Route: 048
  3. SILECE [Concomitant]
     Indication: INSOMNIA
     Dosage: UNCERTAINTY
     Route: 048
  4. LASIX [Concomitant]
     Indication: HYPERTENSION
     Dosage: UNCERTAINTY
     Route: 048
  5. MUCODYNE [Concomitant]
     Indication: CHRONIC OBSTRUCTIVE PULMONARY DISEASE
     Dosage: UNCERTAINTY
     Route: 048
  6. AMBROXOL HYDROCHLORIDE [Concomitant]
     Indication: CHRONIC OBSTRUCTIVE PULMONARY DISEASE
     Dosage: UNCERTAINTY
     Route: 048
  7. ROMIPLOSTIM - KHK [Suspect]
     Indication: IDIOPATHIC THROMBOCYTOPENIC PURPURA
     Dosage: UNK UNK, QWK
     Route: 058
     Dates: start: 20110910, end: 20120128
  8. UNIPHYL [Concomitant]
     Indication: CHRONIC OBSTRUCTIVE PULMONARY DISEASE
     Dosage: UNCERTAINTY
     Route: 048
  9. LENDEM [Concomitant]
     Indication: INSOMNIA
     Dosage: UNCERTAINTY
     Route: 048
  10. TANATRIL [Concomitant]
     Indication: HYPERTENSION
     Dosage: UNCERTAINTY
     Route: 048

REACTIONS (6)
  - PNEUMONIA ASPIRATION [None]
  - PSEUDOMEMBRANOUS COLITIS [None]
  - DEEP VEIN THROMBOSIS [None]
  - INSOMNIA [None]
  - CONSTIPATION [None]
  - SUBCUTANEOUS ABSCESS [None]
